FAERS Safety Report 5237682-0 (Version None)
Quarter: 2007Q1

REPORT INFORMATION
  Report Type: 
  Country: None (occurrence: None)
  Receive Date: 20070214
  Receipt Date: 20070131
  Transmission Date: 20070707
  Serious: No
  Sender: FDA-Public Use
  Company Number: US-ELI_LILLY_AND_COMPANY-US200702000764

PATIENT
  Sex: Female

DRUGS (5)
  1. CYMBALTA [Suspect]
     Dosage: UNK MG, UNK
  2. LOVENOX [Concomitant]
  3. COUMADIN [Concomitant]
  4. MULTI-VITAMIN [Concomitant]
  5. VICODIN [Concomitant]
     Dosage: UNK UNK, AS NEEDED

REACTIONS (1)
  - HEPATIC ENZYME INCREASED [None]
